FAERS Safety Report 8105271-6 (Version None)
Quarter: 2011Q4

REPORT INFORMATION
  Report Type: 
  Country: None (occurrence: None)
  Receive Date: 20111222
  Receipt Date: 20111007
  Transmission Date: 20120403
  Serious: Yes (Death)
  Sender: FDA-Public Use
  Company Number: UTC-010981

PATIENT
  Age: 63 Year
  Sex: Female
  Weight: 68.1 kg

DRUGS (4)
  1. TRACLEER (BOSENTAN) (UNKNOWN) [Concomitant]
  2. COUMADIN [Concomitant]
  3. TYVASO [Suspect]
     Indication: PULMONARY ARTERIAL HYPERTENSION
     Dosage: 18 -54 MICROGRAMS  (4 IN 1 D), INHALATION
     Route: 055
     Dates: start: 20100914
  4. ADCIRCA (TADALAFIL) (UNKNOWN) [Concomitant]

REACTIONS (1)
  - RIGHT VENTRICULAR FAILURE [None]
